FAERS Safety Report 7578356-0 (Version None)
Quarter: 2011Q2

REPORT INFORMATION
  Report Type: 
  Country: None (occurrence: None)
  Receive Date: 20110628
  Receipt Date: 20110621
  Transmission Date: 20111010
  Serious: Yes (Life-Threatening, Hospitalization)
  Sender: FDA-Public Use
  Company Number: FR-TEVA-232158ISR

PATIENT
  Sex: Female

DRUGS (5)
  1. MIANSERIN [Concomitant]
     Indication: POST-TRAUMATIC STRESS DISORDER
     Dosage: 60 MILLIGRAM;
     Route: 048
     Dates: start: 20090811, end: 20091202
  2. ALPRAZOLAM [Concomitant]
     Indication: POST-TRAUMATIC STRESS DISORDER
     Dosage: .5 MILLIGRAM;
     Route: 048
     Dates: start: 20090811, end: 20091202
  3. SERTRALINE HYDROCHLORIDE [Concomitant]
     Dosage: 50 MILLIGRAM;
     Route: 048
     Dates: start: 20091202
  4. DIAZEPAM [Concomitant]
     Dosage: 10 MILLIGRAM;
     Route: 048
  5. COPAXONE [Suspect]
     Indication: MULTIPLE SCLEROSIS
     Dosage: 20 MILLIGRAM;
     Route: 058
     Dates: start: 20080820

REACTIONS (4)
  - DEPRESSION [None]
  - OBSESSIVE-COMPULSIVE PERSONALITY DISORDER [None]
  - BULIMIA NERVOSA [None]
  - SUICIDE ATTEMPT [None]
